FAERS Safety Report 4412182-6 (Version None)
Quarter: 2004Q3

REPORT INFORMATION
  Report Type: 
  Country: None (occurrence: None)
  Receive Date: 20040727
  Receipt Date: 20040712
  Transmission Date: 20050211
  Serious: No
  Sender: FDA-Public Use
  Company Number: 04P-143-0266723-00

PATIENT
  Age: 69 Year
  Sex: Male
  Weight: 74 kg

DRUGS (2)
  1. HYTRIN [Suspect]
     Indication: MUSCLE SPASMS
     Dosage: 10 MG, 1 IN 1 D, PER ORAL
     Route: 048
     Dates: start: 20000101
  2. HYTRIN [Suspect]
     Indication: PROSTATIC DISORDER
     Dosage: 10 MG, 1 IN 1 D, PER ORAL
     Route: 048
     Dates: start: 20000101

REACTIONS (1)
  - RAYNAUD'S PHENOMENON [None]
